FAERS Safety Report 23598001 (Version 10)
Quarter: 2025Q2

REPORT INFORMATION
  Report Type: Spontaneous
  Country: US (occurrence: US)
  Receive Date: 20240305
  Receipt Date: 20250410
  Transmission Date: 20250717
  Serious: Yes (Hospitalization)
  Sender: CSL BEHRING
  Company Number: US-BEH-2024168952

PATIENT
  Age: 53 Year
  Sex: Female

DRUGS (30)
  1. HIZENTRA [Suspect]
     Active Substance: HUMAN IMMUNOGLOBULIN G
     Indication: Immunodeficiency common variable
     Dosage: 17 GRAM, QW
     Route: 058
  2. HIZENTRA [Suspect]
     Active Substance: HUMAN IMMUNOGLOBULIN G
     Dosage: 17 GRAM, QW
     Route: 058
  3. HIZENTRA [Suspect]
     Active Substance: HUMAN IMMUNOGLOBULIN G
     Dosage: 17 G, QW
     Route: 058
  4. HIZENTRA [Suspect]
     Active Substance: HUMAN IMMUNOGLOBULIN G
     Dosage: 17 G, QW
     Route: 058
  5. DOXYCYCLINE [Concomitant]
     Active Substance: DOXYCYCLINE
  6. LEVOTHYROXINE [Concomitant]
     Active Substance: LEVOTHYROXINE
  7. METFORMIN [Concomitant]
     Active Substance: METFORMIN HYDROCHLORIDE
  8. ALBUTEROL SULFATE [Concomitant]
     Active Substance: ALBUTEROL SULFATE
  9. ATORVASTATIN [Concomitant]
     Active Substance: ATORVASTATIN
  10. Azelastin hysan [Concomitant]
  11. BACLOFEN [Concomitant]
     Active Substance: BACLOFEN
  12. CELECOXIB [Concomitant]
     Active Substance: CELECOXIB
  13. DIVALPROEX SODIUM [Concomitant]
     Active Substance: DIVALPROEX SODIUM
  14. FLOVENT HFA [Concomitant]
     Active Substance: FLUTICASONE PROPIONATE
  15. FLUTICASONE [Concomitant]
     Active Substance: FLUTICASONE
  16. FOLIC ACID [Concomitant]
     Active Substance: FOLIC ACID
  17. GABAPENTIN [Concomitant]
     Active Substance: GABAPENTIN
  18. LITHIUM CARBONATE [Concomitant]
     Active Substance: LITHIUM CARBONATE
  19. METHOTREXATE [Concomitant]
     Active Substance: METHOTREXATE
  20. MONTELUKAST [Concomitant]
     Active Substance: MONTELUKAST
  21. OMEPRAZOLE [Concomitant]
     Active Substance: OMEPRAZOLE
  22. PRIMIDONE [Concomitant]
     Active Substance: PRIMIDONE
  23. PROPRANOLOL [Concomitant]
     Active Substance: PROPRANOLOL HYDROCHLORIDE
  24. SERTRALINE HYDROCHLORIDE [Concomitant]
     Active Substance: SERTRALINE HYDROCHLORIDE
  25. UBRELVY [Concomitant]
     Active Substance: UBROGEPANT
  26. VALACYCLOVIR [Concomitant]
     Active Substance: VALACYCLOVIR HYDROCHLORIDE
  27. VITAMIN B12 [Concomitant]
     Active Substance: CYANOCOBALAMIN
  28. VITAMIN D3 [Concomitant]
     Active Substance: CHOLECALCIFEROL
  29. CALCIUM [Concomitant]
     Active Substance: CALCIUM
  30. EMGALITY [Concomitant]
     Active Substance: GALCANEZUMAB-GNLM

REACTIONS (34)
  - Vitamin B1 decreased [Unknown]
  - Infusion site discharge [Not Recovered/Not Resolved]
  - Erythema [Not Recovered/Not Resolved]
  - Infusion site discharge [Not Recovered/Not Resolved]
  - Injection site discharge [Unknown]
  - Injection site haemorrhage [Unknown]
  - Injection site swelling [Unknown]
  - Sinusitis [Unknown]
  - Insomnia [Unknown]
  - Productive cough [Unknown]
  - Feeding disorder [Unknown]
  - Oligodipsia [Unknown]
  - Taste disorder [Unknown]
  - Depression [Unknown]
  - Fall [Unknown]
  - Head injury [Unknown]
  - Joint injury [Unknown]
  - Limb injury [Unknown]
  - Concussion [Unknown]
  - Fall [Unknown]
  - Injection site pruritus [Not Recovered/Not Resolved]
  - Injection site discharge [Unknown]
  - Injection site haemorrhage [Recovered/Resolved]
  - Pain [Unknown]
  - Sleep disorder [Unknown]
  - Depressed mood [Unknown]
  - Injection site reaction [Not Recovered/Not Resolved]
  - Injection site discharge [Recovered/Resolved]
  - Fatigue [Recovered/Resolved]
  - Illness [Recovered/Resolved]
  - Nasopharyngitis [Recovered/Resolved]
  - Injection site haemorrhage [Recovered/Resolved]
  - Infusion site haemorrhage [Unknown]
  - Infusion site haemorrhage [Unknown]

NARRATIVE: CASE EVENT DATE: 20230101
